FAERS Safety Report 20688845 (Version 2)
Quarter: 2022Q2

REPORT INFORMATION
  Report Type: Spontaneous
  Country: FR (occurrence: FR)
  Receive Date: 20220408
  Receipt Date: 20220428
  Transmission Date: 20220721
  Serious: Yes (Hospitalization)
  Sender: FDA-Public Use
  Company Number: None

PATIENT
  Age: 48 Year
  Sex: Male
  Weight: 59.1 kg

DRUGS (6)
  1. LANSOPRAZOLE [Suspect]
     Active Substance: LANSOPRAZOLE
     Indication: Product used for unknown indication
     Dosage: UNIT DOSE: 30 MG, FREQUENCY TIME- 1 DAY, DURATION-54 DAYS
     Route: 048
     Dates: start: 20211229, end: 20220221
  2. ETHAMBUTOL HYDROCHLORIDE [Suspect]
     Active Substance: ETHAMBUTOL HYDROCHLORIDE
     Indication: Tuberculosis
     Dosage: FORM STRENGTH: 500 MG, UNIT DOSE: 2 DF, FREQUENCY TIME- 1 DAY, DURATION-60 DAYS
     Route: 048
     Dates: start: 20211104, end: 20220103
  3. LOVENOX [Suspect]
     Active Substance: ENOXAPARIN SODIUM
     Indication: Thrombosis prophylaxis
     Dosage: UNIT DOSE: 4000 IU, FREQUENCY TIME- 1 DAY, DURATION-116 DAYS
     Route: 058
     Dates: start: 20211030, end: 20220223
  4. ISONIAZID [Suspect]
     Active Substance: ISONIAZID
     Indication: Tuberculosis
     Dosage: UNIT DOSE: 250 MG, FREQUENCY TIME- 1 DAY, DURATION-60 DAYS
     Dates: start: 20211104, end: 20220103
  5. PYRAZINAMIDE [Suspect]
     Active Substance: PYRAZINAMIDE
     Indication: Tuberculosis
     Dosage: UNIT DOSE: 1500 MG, FREQUENCY TIME- 1 DAY, DURATION-54 DAYS
     Dates: start: 20211104, end: 20211228
  6. RIFAMPIN [Suspect]
     Active Substance: RIFAMPIN
     Indication: Tuberculosis
     Dosage: UNIT DOSE: 600 MG, FREQUENCY TIME- 1 DAY, DURATION-60 DAYS
     Route: 048
     Dates: start: 20211104, end: 20220103

REACTIONS (1)
  - Hepatic cytolysis [Not Recovered/Not Resolved]

NARRATIVE: CASE EVENT DATE: 20211227
